FAERS Safety Report 16596503 (Version 1)
Quarter: 2019Q3

REPORT INFORMATION
  Report Type: Spontaneous
  Country: NL (occurrence: NL)
  Receive Date: 20190719
  Receipt Date: 20190719
  Transmission Date: 20191004
  Serious: Yes (Death, Hospitalization)
  Sender: FDA-Public Use
  Company Number: NL-ROCHE-2356565

PATIENT
  Age: 69 Year
  Sex: Male
  Weight: 90 kg

DRUGS (8)
  1. RITUXIMAB. [Suspect]
     Active Substance: RITUXIMAB
     Indication: RHEUMATOID ARTHRITIS
     Dosage: DOSERING NIET INGEVULD
     Route: 042
     Dates: start: 20120110
  2. ACTONEL [Concomitant]
     Active Substance: RISEDRONATE SODIUM
     Dosage: 1XPER WEEK 1
     Route: 065
  3. OMEPRAZOL [OMEPRAZOLE] [Concomitant]
     Active Substance: OMEPRAZOLE
     Dosage: 1DD1
     Route: 065
  4. LOSARTANKALIUM [Concomitant]
     Active Substance: LOSARTAN
     Dosage: 1DD1? 100/25
     Route: 065
  5. PREDNISOLON [PREDNISOLONE] [Concomitant]
     Active Substance: PREDNISOLONE
     Dosage: 3DD5MG
     Route: 065
  6. KENACORT-A 10 [Suspect]
     Active Substance: TRIAMCINOLONE ACETONIDE
     Indication: RHEUMATOID ARTHRITIS
     Dosage: DOSERING NIET INGEVULD
     Route: 065
     Dates: start: 20120110
  7. INDOCID [INDOMETACIN] [Concomitant]
     Active Substance: INDOMETHACIN
     Dosage: 2DD50MG
     Route: 065
  8. THEOLAIR [Concomitant]
     Active Substance: THEOPHYLLINE ANHYDROUS
     Dosage: 3DD1
     Route: 065

REACTIONS (4)
  - Abnormal faeces [Fatal]
  - Intracardiac thrombus [Not Recovered/Not Resolved]
  - Intestinal perforation [Not Recovered/Not Resolved]
  - Myocardial infarction [Fatal]

NARRATIVE: CASE EVENT DATE: 20130120
